FAERS Safety Report 15134806 (Version 1)
Quarter: 2018Q3

REPORT INFORMATION
  Report Type: Spontaneous
  Country: ZA (occurrence: ZA)
  Receive Date: 20180712
  Receipt Date: 20180712
  Transmission Date: 20181010
  Serious: Yes (Hospitalization, Other)
  Sender: FDA-Public Use
  Company Number: ZA-PFIZER INC-2018279125

PATIENT
  Age: 56 Year
  Sex: Male

DRUGS (5)
  1. THIAMINE [Suspect]
     Active Substance: THIAMINE
     Dosage: 100 MG, UNK
  2. CILIFT [Suspect]
     Active Substance: CITALOPRAM HYDROBROMIDE
     Dosage: 20 MG, UNK
  3. ASPAVOR [Suspect]
     Active Substance: ATORVASTATIN
     Dosage: 10 MG, UNK
  4. PREXUM [Suspect]
     Active Substance: PERINDOPRIL ERBUMINE
     Dosage: 4 MG, UNK
  5. FOLIC ACID. [Suspect]
     Active Substance: FOLIC ACID
     Dosage: 5 MG, UNK

REACTIONS (1)
  - Hip fracture [Unknown]
